FAERS Safety Report 5206482-X (Version None)
Quarter: 2007Q1

REPORT INFORMATION
  Report Type: 
  Country: None (occurrence: None)
  Receive Date: 20070111
  Receipt Date: 20070103
  Transmission Date: 20070707
  Serious: Yes (Hospitalization)
  Sender: FDA-Public Use
  Company Number: FR-PFIZER INC-2007002175

PATIENT
  Age: 64 Year
  Sex: Male

DRUGS (7)
  1. SOLU-MEDROL [Suspect]
     Route: 042
     Dates: start: 20060920, end: 20060920
  2. ONDANSETRON [Suspect]
     Route: 042
     Dates: start: 20060920, end: 20060920
  3. DEXCHLORPHENIRAMINE MALEATE [Concomitant]
  4. GRANISETRON [Concomitant]
  5. OXALIPLATIN [Concomitant]
  6. FLUOROURACIL [Concomitant]
  7. CALCIUM W/MAGNESIUM [Concomitant]

REACTIONS (5)
  - ANAPHYLACTIC SHOCK [None]
  - BRADYCARDIA [None]
  - HYPOTENSION [None]
  - RASH [None]
  - THROMBOCYTOPENIA [None]
